FAERS Safety Report 7920453-1 (Version None)
Quarter: 2011Q4

REPORT INFORMATION
  Report Type: 
  Country: None (occurrence: None)
  Receive Date: 20111117
  Receipt Date: 20111109
  Transmission Date: 20120403
  Serious: Yes (Other)
  Sender: FDA-Public Use
  Company Number: PHHY2011FR098958

PATIENT
  Age: 54 Year
  Sex: Female

DRUGS (2)
  1. SORAFENIB TOSILATE [Concomitant]
     Dosage: 400 MG, BID
     Route: 048
  2. ZOLEDRONIC ACID [Suspect]
     Dosage: 4 MG, EVERY THREE WEEKS

REACTIONS (1)
  - PALMAR-PLANTAR ERYTHRODYSAESTHESIA SYNDROME [None]
